FAERS Safety Report 20668544 (Version 1)
Quarter: 2022Q2

REPORT INFORMATION
  Report Type: Spontaneous
  Country: US (occurrence: US)
  Receive Date: 20220404
  Receipt Date: 20220404
  Transmission Date: 20220720
  Serious: No
  Sender: FDA-Public Use
  Company Number: US-009507513-2203USA007459

PATIENT
  Age: 71 Year
  Sex: Male

DRUGS (9)
  1. EMEND [Suspect]
     Active Substance: APREPITANT
     Indication: Transient acantholytic dermatosis
     Dosage: UNK
     Route: 048
  2. TRIAMCINOLONE [Concomitant]
     Active Substance: TRIAMCINOLONE
     Indication: Transient acantholytic dermatosis
  3. GABAPENTIN [Concomitant]
     Active Substance: GABAPENTIN
     Indication: Transient acantholytic dermatosis
  4. PREDNISONE [Concomitant]
     Active Substance: PREDNISONE
     Indication: Transient acantholytic dermatosis
  5. HYDROXYZINE [Concomitant]
     Active Substance: HYDROXYZINE HYDROCHLORIDE
     Indication: Transient acantholytic dermatosis
  6. DIPHENHYDRAMINE [Concomitant]
     Active Substance: DIPHENHYDRAMINE
     Indication: Transient acantholytic dermatosis
  7. CETIRIZINE [Concomitant]
     Active Substance: CETIRIZINE HYDROCHLORIDE
     Indication: Transient acantholytic dermatosis
  8. NIVOLUMAB [Concomitant]
     Active Substance: NIVOLUMAB
  9. IPILIMUMAB [Concomitant]
     Active Substance: IPILIMUMAB

REACTIONS (1)
  - Product use in unapproved indication [Unknown]
